FAERS Safety Report 21299672 (Version 1)
Quarter: 2022Q3

REPORT INFORMATION
  Report Type: Spontaneous
  Country: US (occurrence: None)
  Receive Date: 20220906
  Receipt Date: 20220906
  Transmission Date: 20221027
  Serious: Yes (Hospitalization)
  Sender: FDA-Public Use
  Company Number: None

PATIENT
  Age: 47 Year
  Sex: Female

DRUGS (1)
  1. PAXLOVID [Suspect]
     Active Substance: NIRMATRELVIR\RITONAVIR
     Indication: COVID-19
     Dosage: OTHER QUANTITY : 30 TABLET(S);?FREQUENCY : TWICE A DAY;?
     Route: 048
     Dates: start: 20220808, end: 20220812

REACTIONS (6)
  - Drug interaction [None]
  - Mental disorder [None]
  - Hallucination, auditory [None]
  - Delusion [None]
  - Anxiety [None]
  - Urinary tract infection [None]

NARRATIVE: CASE EVENT DATE: 20220813
